FAERS Safety Report 4934173-9 (Version None)
Quarter: 2006Q1

REPORT INFORMATION
  Report Type: 
  Country: None (occurrence: None)
  Receive Date: 20060303
  Receipt Date: 20060222
  Transmission Date: 20060701
  Serious: Yes (Other)
  Sender: FDA-Public Use
  Company Number: 200610153BCC

PATIENT
  Age: 76 Year
  Sex: Female
  Weight: 113.3993 kg

DRUGS (13)
  1. ALEVE [Suspect]
     Indication: ARTHRALGIA
     Dosage: 880 + 660 MG, TOTAL DAILY, ORAL
     Route: 048
     Dates: start: 19950101, end: 20050608
  2. ALEVE [Suspect]
     Indication: BACK PAIN
     Dosage: 880 + 660 MG, TOTAL DAILY, ORAL
     Route: 048
     Dates: start: 19950101, end: 20050608
  3. ACETYLSALICYLIC ACID SRT [Suspect]
     Indication: MYOCARDIAL INFARCTION
     Dosage: 325 MG, QD, ORAL
     Route: 048
  4. ACETYLSALICYLIC ACID SRT [Suspect]
     Indication: PROPHYLAXIS
     Dosage: 325 MG, QD, ORAL
     Route: 048
  5. ZOCOR [Concomitant]
  6. TRIAMTERENE [Concomitant]
  7. ATENOLOL [Concomitant]
  8. FLOVENT [Concomitant]
  9. ALBUTEROL [Concomitant]
  10. FORADIL [Concomitant]
  11. MULTIVITAMIN SUPPLEMENT [Concomitant]
  12. VITAMIN E SUPPLEMENT [Concomitant]
  13. NEXIUM [Concomitant]

REACTIONS (5)
  - INAPPROPRIATE SCHEDULE OF DRUG ADMINISTRATION [None]
  - KIDNEY SMALL [None]
  - PROTEIN URINE [None]
  - RENAL DISORDER [None]
  - SCAR [None]
